FAERS Safety Report 6803862-3 (Version None)
Quarter: 2010Q2

REPORT INFORMATION
  Report Type: 
  Country: None (occurrence: None)
  Receive Date: 20100628
  Receipt Date: 20100618
  Transmission Date: 20101027
  Serious: Yes (Other)
  Sender: FDA-Public Use
  Company Number: US-BAXTER-2010BH013021

PATIENT
  Age: 38 Year
  Sex: Female

DRUGS (3)
  1. LACTATED RINGER'S [Suspect]
     Indication: MEDICATION DILUTION
     Route: 042
     Dates: start: 20100512, end: 20100512
  2. INFUVITE ADULT [Suspect]
     Indication: MEDICAL DIET
     Route: 042
     Dates: start: 20100512, end: 20100512
  3. INFUVITE ADULT [Suspect]
     Route: 042
     Dates: start: 20100512, end: 20100512

REACTIONS (3)
  - ANAPHYLACTIC REACTION [None]
  - OXYGEN SATURATION DECREASED [None]
  - PHARYNGEAL ERYTHEMA [None]
